FAERS Safety Report 8506408-7 (Version None)
Quarter: 2012Q3

REPORT INFORMATION
  Report Type: 
  Country: None (occurrence: None)
  Receive Date: 20120712
  Receipt Date: 20120705
  Transmission Date: 20120928
  Serious: Yes (Other)
  Sender: FDA-Public Use
  Company Number: GB-PFIZER INC-2012162095

PATIENT
  Sex: Male

DRUGS (1)
  1. CAVERJECT [Suspect]

REACTIONS (1)
  - MYOCARDIAL INFARCTION [None]
